FAERS Safety Report 7427896-3 (Version None)
Quarter: 2011Q2

REPORT INFORMATION
  Report Type: 
  Country: None (occurrence: None)
  Receive Date: 20110413
  Receipt Date: 20110408
  Transmission Date: 20111010
  Serious: Yes (Hospitalization)
  Sender: FDA-Public Use
  Company Number: B0711811A

PATIENT
  Age: 27 Year
  Sex: Female

DRUGS (1)
  1. PROPRANOLOL HYDROCHLORIDE [Suspect]
     Dosage: 7 GRAM(S) / ORAL
     Route: 048

REACTIONS (9)
  - FALL [None]
  - ELECTROCARDIOGRAM QT PROLONGED [None]
  - BRADYCARDIA [None]
  - PUPILLARY REFLEX IMPAIRED [None]
  - GRAND MAL CONVULSION [None]
  - BLOOD PRESSURE SYSTOLIC DECREASED [None]
  - COMA SCALE ABNORMAL [None]
  - INTENTIONAL OVERDOSE [None]
  - NO THERAPEUTIC RESPONSE [None]
